FAERS Safety Report 5410446-0 (Version None)
Quarter: 2007Q3

REPORT INFORMATION
  Report Type: 
  Country: None (occurrence: None)
  Receive Date: 20070810
  Receipt Date: 20070110
  Transmission Date: 20080115
  Serious: No
  Sender: FDA-Public Use
  Company Number: A0635162A

PATIENT
  Age: 74 Year
  Sex: Female

DRUGS (2)
  1. PAXIL [Suspect]
     Indication: NEUROPATHY
     Dosage: 1.25ML PER DAY
     Route: 048
     Dates: start: 20070108
  2. PAXIL [Suspect]
     Dosage: 20MG PER DAY
     Route: 048

REACTIONS (2)
  - ANORGASMIA [None]
  - HYPOAESTHESIA ORAL [None]
